FAERS Safety Report 22368610 (Version 1)
Quarter: 2023Q2

REPORT INFORMATION
  Report Type: Spontaneous
  Country: US (occurrence: US)
  Receive Date: 20230525
  Receipt Date: 20230525
  Transmission Date: 20230721
  Serious: No
  Sender: FDA-Public Use
  Company Number: US-BRISTOL-MYERS SQUIBB COMPANY-2023-074010

PATIENT
  Age: 66 Year
  Sex: Male
  Weight: 53.52 kg

DRUGS (1)
  1. REVLIMID [Suspect]
     Active Substance: LENALIDOMIDE
     Indication: Plasma cell myeloma
     Dosage: FREQUENCY - DAILY DAYS 1-14, EVERY 21 DAYS
     Route: 048
     Dates: start: 20221025

REACTIONS (4)
  - Behaviour disorder [Not Recovered/Not Resolved]
  - Fall [Not Recovered/Not Resolved]
  - Personality change [Not Recovered/Not Resolved]
  - Off label use [Unknown]

NARRATIVE: CASE EVENT DATE: 20230515
